FAERS Safety Report 12314190 (Version 2)
Quarter: 2016Q3

REPORT INFORMATION
  Report Type: Spontaneous
  Country: US (occurrence: US)
  Receive Date: 20160428
  Receipt Date: 20160809
  Transmission Date: 20161109
  Serious: No
  Sender: FDA-Public Use
  Company Number: US-TEVA-655267USA

PATIENT
  Age: 59 Year
  Sex: Female

DRUGS (28)
  1. MAGNESIUM [Concomitant]
     Active Substance: MAGNESIUM
  2. IBUPROFEN. [Concomitant]
     Active Substance: IBUPROFEN
  3. OMEPRAZOLE. [Concomitant]
     Active Substance: OMEPRAZOLE
  4. COLACE [Concomitant]
     Active Substance: DOCUSATE SODIUM
  5. ANASTROZOLE. [Concomitant]
     Active Substance: ANASTROZOLE
  6. FISH OIL [Concomitant]
     Active Substance: FISH OIL
  7. LINZESS [Concomitant]
     Active Substance: LINACLOTIDE
  8. ALLOPURINOL. [Concomitant]
     Active Substance: ALLOPURINOL
  9. IPRATROPIUM [Concomitant]
     Active Substance: IPRATROPIUM
  10. MELOXICAM. [Concomitant]
     Active Substance: MELOXICAM
  11. VENTOLIN HFA [Concomitant]
     Active Substance: ALBUTEROL SULFATE
  12. LISINOPRIL. [Concomitant]
     Active Substance: LISINOPRIL
  13. PROCTOFOAM [Concomitant]
     Active Substance: PRAMOXINE HYDROCHLORIDE
  14. ANUCORT-HC [Concomitant]
     Active Substance: HYDROCORTISONE ACETATE
  15. GABAPENTIN. [Concomitant]
     Active Substance: GABAPENTIN
  16. HYDROCHLOROT [Concomitant]
     Active Substance: HYDROCHLOROTHIAZIDE
  17. COPAXONE [Suspect]
     Active Substance: GLATIRAMER ACETATE
     Indication: MULTIPLE SCLEROSIS
     Route: 058
     Dates: start: 20151109
  18. LORAZEPAM. [Concomitant]
     Active Substance: LORAZEPAM
  19. SOL/SALBUTEROL [Concomitant]
  20. VITAMIN D [Concomitant]
     Active Substance: CHOLECALCIFEROL
  21. FLUTICASONE [Concomitant]
     Active Substance: FLUTICASONE\FLUTICASONE PROPIONATE
  22. AER [Concomitant]
  23. SPIRIVA [Concomitant]
     Active Substance: TIOTROPIUM BROMIDE MONOHYDRATE
  24. MONTELUKAST [Concomitant]
     Active Substance: MONTELUKAST SODIUM
  25. NYSTATIN. [Concomitant]
     Active Substance: NYSTATIN
  26. ATORVASTATIN [Concomitant]
     Active Substance: ATORVASTATIN
  27. ALBUTEROL. [Concomitant]
     Active Substance: ALBUTEROL
  28. DIAZEPAM. [Concomitant]
     Active Substance: DIAZEPAM

REACTIONS (1)
  - Pain [Unknown]

NARRATIVE: CASE EVENT DATE: 201604
